FAERS Safety Report 9362000 (Version 3)
Quarter: 2014Q1

REPORT INFORMATION
  Report Type: Spontaneous
  Country: US (occurrence: US)
  Receive Date: 20130621
  Receipt Date: 20140108
  Transmission Date: 20141002
  Serious: Yes (Hospitalization)
  Sender: FDA-Public Use
  Company Number: US-B.I. PHARMACEUTICALS,INC./RIDGEFIELD-2013-BI-17415BP

PATIENT
  Age: 82 Year
  Sex: Female
  Weight: 113.4 kg

DRUGS (8)
  1. PRADAXA [Suspect]
     Indication: ATRIAL FIBRILLATION
     Dosage: 300 MG
     Route: 048
     Dates: start: 20110610, end: 20110707
  2. PRADAXA [Suspect]
     Indication: ANTICOAGULANT THERAPY
  3. PRADAXA [Suspect]
     Indication: CEREBROVASCULAR ACCIDENT PROPHYLAXIS
  4. INSULIN [Concomitant]
     Dates: start: 200412
  5. NITROSTAT [Concomitant]
     Route: 060
  6. LEVOBUNOLOL HCL [Concomitant]
     Dates: start: 200507
  7. VYTORIN [Concomitant]
     Dates: start: 200801
  8. LOSARTAN POTASSIUM [Concomitant]
     Dates: start: 20040903

REACTIONS (1)
  - Gastrointestinal haemorrhage [Unknown]
